FAERS Safety Report 10238152 (Version 1)
Quarter: 2014Q2

REPORT INFORMATION
  Report Type: Spontaneous
  Country: US (occurrence: None)
  Receive Date: 20140613
  Receipt Date: 20140613
  Transmission Date: 20141212
  Serious: Yes (Hospitalization)
  Sender: FDA-Public Use
  Company Number: None

PATIENT
  Age: 67 Year
  Sex: Male
  Weight: 77 kg

DRUGS (2)
  1. CLOPIDOGREL [Suspect]
     Route: 048
     Dates: start: 20130411, end: 20131231
  2. ASPIRIN [Suspect]
     Route: 048
     Dates: start: 20090323, end: 20140421

REACTIONS (2)
  - Haematuria [None]
  - Thrombosis [None]
